FAERS Safety Report 15521109 (Version 1)
Quarter: 2018Q4

REPORT INFORMATION
  Report Type: Report from Study
  Country: US (occurrence: US)
  Receive Date: 20181017
  Receipt Date: 20181017
  Transmission Date: 20190205
  Serious: No
  Sender: FDA-Public Use
  Company Number: US-AMGEN-USASL2018111513

PATIENT
  Sex: Female

DRUGS (1)
  1. REPATHA [Suspect]
     Active Substance: EVOLOCUMAB
     Indication: HYPERLIPIDAEMIA
     Dosage: 140 MG, Q2WK
     Route: 065
     Dates: end: 2018

REACTIONS (6)
  - Arthralgia [Unknown]
  - Nasal congestion [Unknown]
  - Epistaxis [Unknown]
  - Diarrhoea [Unknown]
  - Abdominal pain upper [Unknown]
  - Muscle spasms [Unknown]
